FAERS Safety Report 8327831-X (Version None)
Quarter: 2012Q2

REPORT INFORMATION
  Report Type: 
  Country: None (occurrence: None)
  Receive Date: 20120502
  Receipt Date: 20120418
  Transmission Date: 20120825
  Serious: Yes (Hospitalization, Other)
  Sender: FDA-Public Use
  Company Number: CN-JNJFOC-20110607453

PATIENT
  Sex: Female

DRUGS (2)
  1. SPORANOX [Suspect]
     Indication: PRURITUS
     Route: 048
     Dates: start: 20110603, end: 20110610
  2. SPORANOX [Suspect]
     Route: 048
     Dates: start: 20110612

REACTIONS (2)
  - GINGIVAL ULCERATION [None]
  - PAIN IN EXTREMITY [None]
